FAERS Safety Report 6102569-8 (Version None)
Quarter: 2009Q1

REPORT INFORMATION
  Report Type: 
  Country: None (occurrence: None)
  Receive Date: 20090304
  Receipt Date: 20080828
  Transmission Date: 20090719
  Serious: No
  Sender: FDA-Public Use
  Company Number: A0744947A

PATIENT
  Age: 63 Year
  Sex: Female

DRUGS (5)
  1. REQUIP [Suspect]
     Indication: RESTLESS LEGS SYNDROME
     Dosage: 1MG PER DAY
     Route: 048
     Dates: start: 20080811
  2. HYDROCHLOROTHIAZIDE [Concomitant]
  3. TOPROL-XL [Concomitant]
  4. WELCHOL [Concomitant]
  5. COUMADIN [Concomitant]

REACTIONS (1)
  - FATIGUE [None]
